FAERS Safety Report 4385902-7 (Version None)
Quarter: 2004Q2

REPORT INFORMATION
  Report Type: 
  Country: None (occurrence: None)
  Receive Date: 20040628
  Receipt Date: 20040617
  Transmission Date: 20050107
  Serious: Yes (Other)
  Sender: FDA-Public Use
  Company Number: 12609400

PATIENT
  Sex: Female

DRUGS (2)
  1. COMBIVIR [Suspect]
     Indication: HIV INFECTION
     Dates: start: 20030807
  2. EFAVIRENZ [Suspect]
     Indication: HIV INFECTION
     Dates: start: 20030807

REACTIONS (6)
  - ASTHENIA [None]
  - COORDINATION ABNORMAL [None]
  - DEPRESSION [None]
  - MEMORY IMPAIRMENT [None]
  - MENTAL DISORDER [None]
  - PARAESTHESIA [None]
